FAERS Safety Report 6199012-X (Version None)
Quarter: 2009Q2

REPORT INFORMATION
  Report Type: 
  Country: None (occurrence: None)
  Receive Date: 20090519
  Receipt Date: 20090519
  Transmission Date: 20091009
  Serious: Yes (Disabling)
  Sender: FDA-Public Use
  Company Number: None

PATIENT
  Age: 25 Year
  Sex: Female
  Weight: 82.5547 kg

DRUGS (1)
  1. MIRENA [Suspect]
     Indication: MENORRHAGIA
     Dosage: INTRA-UTERINE
     Route: 015
     Dates: start: 20090211, end: 20090518

REACTIONS (10)
  - BACK PAIN [None]
  - DEPRESSION [None]
  - DYSPAREUNIA [None]
  - FATIGUE [None]
  - HAEMORRHAGE [None]
  - LOSS OF LIBIDO [None]
  - MOOD SWINGS [None]
  - MUSCLE SPASMS [None]
  - RESTLESSNESS [None]
  - WEIGHT INCREASED [None]
